FAERS Safety Report 7755589-1 (Version None)
Quarter: 2011Q3

REPORT INFORMATION
  Report Type: 
  Country: None (occurrence: None)
  Receive Date: 20110916
  Receipt Date: 20110905
  Transmission Date: 20111222
  Serious: Yes (Disabling, Other)
  Sender: FDA-Public Use
  Company Number: CH-JNJFOC-20110904394

PATIENT
  Sex: Female

DRUGS (7)
  1. IBRUPROFEN [Suspect]
     Indication: ILL-DEFINED DISORDER
     Dates: start: 20100414, end: 20100416
  2. XARELTO [Suspect]
     Indication: OSTEOSYNTHESIS
     Route: 048
     Dates: start: 20100415, end: 20100416
  3. TRAUMANASE [Suspect]
     Indication: ILL-DEFINED DISORDER
     Dates: start: 20100415, end: 20100420
  4. MAGNESIUM [Concomitant]
  5. XARELTO [Suspect]
     Indication: THROMBOSIS PROPHYLAXIS
     Route: 048
     Dates: start: 20100415, end: 20100416
  6. TRAMADOL HYDROCHLORIDE [Concomitant]
  7. DALTEPARIN SODIUM [Concomitant]

REACTIONS (2)
  - PARAPLEGIA [None]
  - EXTRADURAL HAEMATOMA [None]
